FAERS Safety Report 22610794 (Version 1)
Quarter: 2023Q2

REPORT INFORMATION
  Report Type: Report from Study
  Country: CA (occurrence: CA)
  Receive Date: 20230616
  Receipt Date: 20230616
  Transmission Date: 20230721
  Serious: Yes (Hospitalization, Other)
  Sender: FDA-Public Use
  Company Number: CA-ABBVIE-5290936

PATIENT
  Sex: Male

DRUGS (3)
  1. HUMIRA [Suspect]
     Active Substance: ADALIMUMAB
     Indication: Crohn^s disease
     Dosage: STRENGTH: 40 MG
     Route: 058
     Dates: start: 20080612
  2. HUMIRA [Suspect]
     Active Substance: ADALIMUMAB
     Dosage: STRENGTH: 40 MG
     Route: 058
  3. XARELTO [Concomitant]
     Active Substance: RIVAROXABAN
     Indication: Prophylaxis

REACTIONS (17)
  - Small intestinal obstruction [Unknown]
  - Anastomotic stenosis [Unknown]
  - Abdominal distension [Not Recovered/Not Resolved]
  - Iron deficiency [Unknown]
  - Crohn^s disease [Not Recovered/Not Resolved]
  - Polyarthritis [Unknown]
  - Abdominal pain [Not Recovered/Not Resolved]
  - Diarrhoea [Not Recovered/Not Resolved]
  - Therapeutic product effect decreased [Unknown]
  - Drug specific antibody present [Unknown]
  - Arthropathy [Unknown]
  - Inflammatory marker increased [Unknown]
  - Rash [Not Recovered/Not Resolved]
  - Vomiting [Not Recovered/Not Resolved]
  - Small intestinal perforation [Unknown]
  - Knee operation [Unknown]
  - Hypoaesthesia [Unknown]

NARRATIVE: CASE EVENT DATE: 20080101
